FAERS Safety Report 18253572 (Version 1)
Quarter: 2020Q3

REPORT INFORMATION
  Report Type: Report from Study
  Country: CA (occurrence: CA)
  Receive Date: 20200910
  Receipt Date: 20200910
  Transmission Date: 20201103
  Serious: Yes (Other)
  Sender: FDA-Public Use
  Company Number: CA-JNJFOC-20190707814

PATIENT
  Age: 14 Year
  Sex: Female
  Weight: 47.4 kg

DRUGS (5)
  1. REMICADE [Suspect]
     Active Substance: INFLIXIMAB
     Indication: COLITIS ULCERATIVE
     Route: 042
     Dates: start: 20190124
  2. METHOTREXATE. [Concomitant]
     Active Substance: METHOTREXATE
     Route: 048
  3. SULFATE FERREUX [Concomitant]
     Route: 048
  4. ACIDE FOLIQUE [Concomitant]
     Active Substance: FOLIC ACID
     Route: 048
  5. CORTEF [Concomitant]
     Active Substance: HYDROCORTISONE
     Route: 048

REACTIONS (7)
  - Product use issue [Unknown]
  - Abdominal pain lower [Not Recovered/Not Resolved]
  - Wisdom teeth removal [Not Recovered/Not Resolved]
  - Mucous stools [Recovered/Resolved]
  - Upper respiratory tract infection [Recovered/Resolved]
  - Tooth abscess [Not Recovered/Not Resolved]
  - Off label use [Unknown]

NARRATIVE: CASE EVENT DATE: 20190124
